FAERS Safety Report 25211827 (Version 1)
Quarter: 2025Q2

REPORT INFORMATION
  Report Type: Spontaneous
  Country: AU (occurrence: AU)
  Receive Date: 20250418
  Receipt Date: 20250418
  Transmission Date: 20250717
  Serious: Yes (Hospitalization, Other)
  Sender: RANBAXY
  Company Number: AU-SUN PHARMACEUTICAL INDUSTRIES LTD-2025R1-504047

PATIENT
  Age: 57 Year
  Sex: Male

DRUGS (27)
  1. DOXORUBICIN [Suspect]
     Active Substance: DOXORUBICIN
     Indication: Diffuse large B-cell lymphoma
     Route: 042
     Dates: start: 20250122
  2. PREDNISOLONE [Suspect]
     Active Substance: PREDNISOLONE
     Indication: Diffuse large B-cell lymphoma
     Dosage: 100 MILLIGRAM, QD
     Route: 048
     Dates: start: 20250122
  3. VINCRISTINE [Suspect]
     Active Substance: VINCRISTINE
     Indication: Diffuse large B-cell lymphoma
     Route: 042
     Dates: start: 20250122
  4. CC-99282 [Suspect]
     Active Substance: CC-99282
     Indication: Diffuse large B-cell lymphoma
     Dosage: 0.4 MILLIGRAM, QD
     Route: 048
     Dates: start: 20250122
  5. CYCLOPHOSPHAMIDE [Suspect]
     Active Substance: CYCLOPHOSPHAMIDE
     Indication: Diffuse large B-cell lymphoma
     Route: 042
     Dates: start: 20250122
  6. RITUXIMAB [Suspect]
     Active Substance: RITUXIMAB
     Indication: Diffuse large B-cell lymphoma
     Route: 042
     Dates: start: 20250122
  7. SODIUM PHOSPHATE, MONOBASIC, ANHYDROUS [Concomitant]
     Active Substance: SODIUM PHOSPHATE, MONOBASIC, ANHYDROUS
     Indication: Product used for unknown indication
     Dosage: 1000 MILLIGRAM, QD
     Route: 042
     Dates: start: 20250114, end: 20250118
  8. SULFAMETHOXAZOLE\TRIMETHOPRIM [Concomitant]
     Active Substance: SULFAMETHOXAZOLE\TRIMETHOPRIM
     Indication: Prophylaxis
     Dosage: UNK, QD
     Route: 048
     Dates: start: 20250123
  9. ALLOPURINOL [Concomitant]
     Active Substance: ALLOPURINOL
     Indication: Prophylaxis
     Route: 048
     Dates: start: 20250117, end: 20250201
  10. APIXABAN [Concomitant]
     Active Substance: APIXABAN
     Indication: Prophylaxis
     Dosage: 2.5 MILLIGRAM, QD
     Route: 048
     Dates: start: 20250122
  11. BUPRENORPHINE [Concomitant]
     Active Substance: BUPRENORPHINE
     Indication: Product used for unknown indication
     Route: 060
     Dates: start: 20250111, end: 20250124
  12. CALCITONIN SALMON [Concomitant]
     Active Substance: CALCITONIN SALMON
     Indication: Hypercalcaemia
     Route: 058
     Dates: start: 20250120
  13. DESVENLAFAXINE [Concomitant]
     Active Substance: DESVENLAFAXINE
     Indication: Depression
     Route: 048
     Dates: start: 20250113
  14. FENTANYL [Concomitant]
     Active Substance: FENTANYL
     Indication: Product used for unknown indication
     Route: 042
     Dates: start: 20250115, end: 20250115
  15. FUROSEMIDE [Concomitant]
     Active Substance: FUROSEMIDE
     Indication: Hypercalcaemia
     Route: 065
     Dates: start: 20250113, end: 20250122
  16. LACTULOSE [Concomitant]
     Active Substance: LACTULOSE
     Indication: Constipation
     Dosage: 20 MILLILITER, QD
     Route: 048
     Dates: start: 20250116, end: 20250120
  17. LACTULOSE [Concomitant]
     Active Substance: LACTULOSE
     Route: 048
     Dates: start: 20250121, end: 20250124
  18. LIDOCAINE [Concomitant]
     Active Substance: LIDOCAINE
     Indication: Product used for unknown indication
     Route: 023
     Dates: start: 20250121, end: 20250121
  19. METOCLOPRAMIDE [Concomitant]
     Active Substance: METOCLOPRAMIDE
     Indication: Product used for unknown indication
     Route: 042
     Dates: start: 20250110, end: 20250123
  20. MIDAZOLAM [Concomitant]
     Active Substance: MIDAZOLAM
     Indication: Product used for unknown indication
     Route: 042
     Dates: start: 20250121, end: 20250121
  21. OXYCODONE [Concomitant]
     Active Substance: OXYCODONE
     Indication: Product used for unknown indication
     Route: 048
     Dates: start: 20250115
  22. PAMIDRONATE DISODIUM [Concomitant]
     Active Substance: PAMIDRONATE DISODIUM
     Indication: Hypercalcaemia
     Route: 042
     Dates: start: 20250117, end: 20250118
  23. PAMIDRONATE DISODIUM [Concomitant]
     Active Substance: PAMIDRONATE DISODIUM
     Route: 042
     Dates: start: 20250119, end: 20250119
  24. ACETAMINOPHEN [Concomitant]
     Active Substance: ACETAMINOPHEN
     Indication: Product used for unknown indication
     Route: 048
     Dates: start: 20250110, end: 20250118
  25. PEGFILGRASTIM [Concomitant]
     Active Substance: PEGFILGRASTIM
     Indication: Prophylaxis
     Dosage: 6 MILLIGRAM, 3/WEEK
     Route: 058
     Dates: start: 20250123
  26. PREDNISONE [Concomitant]
     Active Substance: PREDNISONE
     Indication: Premedication
     Route: 048
     Dates: start: 20250117, end: 20250121
  27. SODIUM BICARBONATE [Concomitant]
     Active Substance: SODIUM BICARBONATE
     Indication: Prophylaxis
     Route: 048
     Dates: start: 20250122

REACTIONS (1)
  - Epididymitis [Recovered/Resolved]

NARRATIVE: CASE EVENT DATE: 20250128
